FAERS Safety Report 9221916 (Version 2)
Quarter: 2013Q2

REPORT INFORMATION
  Report Type: Spontaneous
  Country: US (occurrence: None)
  Receive Date: 20130408
  Receipt Date: 20130422
  Transmission Date: 20140414
  Serious: Yes (Disabling, Other)
  Sender: FDA-Public Use
  Company Number: ACO_35200_2013

PATIENT
  Age: 58 Year
  Sex: Male
  Weight: 61.2 kg

DRUGS (1)
  1. AMPYRA (DALFAMPRIDINE) TABLET, 10MG [Suspect]
     Indication: FATIGUE
     Route: 048
     Dates: start: 201003, end: 201203

REACTIONS (16)
  - Abasia [None]
  - Fatigue [None]
  - Movement disorder [None]
  - Skin disorder [None]
  - Hypotonia [None]
  - Malaise [None]
  - Motor dysfunction [None]
  - Rash [None]
  - Acute sinusitis [None]
  - Nail disorder [None]
  - Skin candida [None]
  - Folliculitis [None]
  - Pain [None]
  - Asthenia [None]
  - Multiple sclerosis [None]
  - Condition aggravated [None]
